FAERS Safety Report 10696424 (Version 1)
Quarter: 2015Q1

REPORT INFORMATION
  Report Type: Report from Study
  Country: US (occurrence: US)
  Receive Date: 20150107
  Receipt Date: 20150107
  Transmission Date: 20150721
  Serious: Yes (Death)
  Sender: FDA-Public Use
  Company Number: US-ACTELION-A-US2014-110577

PATIENT
  Age: 60 Year
  Sex: Female

DRUGS (11)
  1. PREDNISONE. [Concomitant]
     Active Substance: PREDNISONE
  2. CEPHALEXIN. [Concomitant]
     Active Substance: CEPHALEXIN
  3. CALCIUM [Concomitant]
     Active Substance: CALCIUM
  4. REMODULIN [Concomitant]
     Active Substance: TREPROSTINIL
  5. DIALYVITE [Concomitant]
     Active Substance: ASCORBIC ACID\BIOTIN\CALCIUM PANTOTHENATE\COBALAMIN\FOLIC ACID\NIACINAMIDE\PYRIDOXINE HYDROCHLORIDE\RIBOFLAVIN\THIAMINE MONONITRATE
  6. MIDODRINE [Concomitant]
     Active Substance: MIDODRINE
  7. TRAMADOL [Concomitant]
     Active Substance: TRAMADOL
  8. BENZONATATE. [Concomitant]
     Active Substance: BENZONATATE
  9. MACITENTAN [Suspect]
     Active Substance: MACITENTAN
     Indication: PULMONARY ARTERIAL HYPERTENSION
     Dosage: 10 MG, UNK
     Route: 048
  10. LACTULOSE. [Concomitant]
     Active Substance: LACTULOSE
  11. LIDODERM [Concomitant]
     Active Substance: LIDOCAINE

REACTIONS (3)
  - Systemic lupus erythematosus [Fatal]
  - Pulmonary arterial hypertension [Fatal]
  - Disease progression [Fatal]

NARRATIVE: CASE EVENT DATE: 20141223
